FAERS Safety Report 24188070 (Version 1)
Quarter: 2024Q3

REPORT INFORMATION
  Report Type: Spontaneous
  Country: IT (occurrence: IT)
  Receive Date: 20240808
  Receipt Date: 20240808
  Transmission Date: 20241017
  Serious: Yes (Hospitalization, Other)
  Sender: AUROBINDO
  Company Number: IT-AUROBINDO-AUR-APL-2024-038835

PATIENT
  Age: 50 Year
  Sex: Male

DRUGS (4)
  1. MESALAMINE [Suspect]
     Active Substance: MESALAMINE
     Indication: Crohn^s disease
     Dosage: UNK
     Route: 065
     Dates: start: 1997, end: 2017
  2. TACROLIMUS [Suspect]
     Active Substance: TACROLIMUS
     Indication: Immunosuppression
     Dosage: 2.25 MILLIGRAM, ONCE A DAY
     Route: 065
  3. AZATHIOPRINE [Concomitant]
     Active Substance: AZATHIOPRINE
     Indication: Crohn^s disease
     Dosage: 75 MILLIGRAM, ONCE A DAY
     Route: 065
     Dates: start: 1997, end: 2017
  4. PREDNISONE [Concomitant]
     Active Substance: PREDNISONE
     Indication: Immunosuppression
     Dosage: 2.5 MILLIGRAM, ONCE A DAY
     Route: 065

REACTIONS (1)
  - Acute kidney injury [Unknown]
